FAERS Safety Report 6570888-7 (Version None)
Quarter: 2010Q1

REPORT INFORMATION
  Report Type: 
  Country: None (occurrence: None)
  Receive Date: 20100203
  Receipt Date: 20100203
  Transmission Date: 20100710
  Serious: Yes (Other)
  Sender: FDA-Public Use
  Company Number: None

PATIENT
  Age: 51 Year
  Sex: Female
  Weight: 53.5244 kg

DRUGS (1)
  1. ZANTAC [Suspect]
     Indication: GASTROOESOPHAGEAL REFLUX DISEASE
     Dosage: 150MG 2 A DAY
     Dates: start: 20091127, end: 20100105

REACTIONS (3)
  - ARTHRALGIA [None]
  - CHEST PAIN [None]
  - MYALGIA [None]
